FAERS Safety Report 9119311 (Version 1)
Quarter: 2013Q1

REPORT INFORMATION
  Report Type: Spontaneous
  Country: US (occurrence: None)
  Receive Date: 20130221
  Receipt Date: 20130221
  Transmission Date: 20140127
  Serious: Yes (Other)
  Sender: FDA-Public Use
  Company Number: None

PATIENT
  Age: 79 Year
  Sex: Female
  Weight: 79.38 kg

DRUGS (4)
  1. TIMOLOL MALEATE [Suspect]
     Indication: OPEN ANGLE GLAUCOMA
     Dosage: INSTILL 1 DROP IN LEFT EYE EVERY MORNING, OTIC
     Dates: start: 20110812, end: 20120811
  2. TIMOLOL MALEATE [Suspect]
     Indication: OCULAR HYPERTENSION
     Dosage: INSTILL 1 DROP IN LEFT EYE EVERY MORNING, OTIC
     Dates: start: 20110812, end: 20120811
  3. NEVANAC [Suspect]
     Indication: PAIN
     Dosage: INSTILL 1 DROP IN RIGHT EYE 3 TIMES DAILY OTIC
     Dates: start: 20110812, end: 20120811
  4. NEVANAC [Suspect]
     Indication: SWELLING
     Dosage: INSTILL 1 DROP IN RIGHT EYE 3 TIMES DAILY OTIC
     Dates: start: 20110812, end: 20120811

REACTIONS (1)
  - Hypersensitivity [None]
